FAERS Safety Report 7988111-5 (Version None)
Quarter: 2011Q4

REPORT INFORMATION
  Report Type: 
  Country: None (occurrence: None)
  Receive Date: 20111216
  Receipt Date: 20111208
  Transmission Date: 20120403
  Serious: Yes (Other)
  Sender: FDA-Public Use
  Company Number: IE-JNJFOC-20111206348

PATIENT
  Sex: Female

DRUGS (2)
  1. VARENICLINE TARTRATE [Concomitant]
     Indication: DEPENDENCE
     Route: 065
  2. NICORETTE [Suspect]
     Indication: PRODUCT USED FOR UNKNOWN INDICATION
     Route: 065
     Dates: start: 20101201

REACTIONS (4)
  - DEPENDENCE [None]
  - DRUG ADMINISTRATION ERROR [None]
  - INCORRECT DRUG ADMINISTRATION DURATION [None]
  - OVERDOSE [None]
